FAERS Safety Report 12646933 (Version 5)
Quarter: 2017Q3

REPORT INFORMATION
  Report Type: Spontaneous
  Country: US (occurrence: US)
  Receive Date: 20160812
  Receipt Date: 20170720
  Transmission Date: 20171127
  Serious: Yes (Hospitalization, Other)
  Sender: FDA-Public Use
  Company Number: US-BRISTOL-MYERS SQUIBB COMPANY-BMS-2016-064123

PATIENT
  Age: 73 Year
  Sex: Female

DRUGS (2)
  1. ORENCIA [Suspect]
     Active Substance: ABATACEPT
     Indication: RHEUMATOID ARTHRITIS
     Dosage: UNK, QWK
     Route: 058
  2. ORENCIA [Suspect]
     Active Substance: ABATACEPT
     Indication: PRODUCT USED FOR UNKNOWN INDICATION
     Dosage: UNK
     Route: 042
     Dates: start: 2011

REACTIONS (10)
  - Arthritis [Unknown]
  - Pneumonia [Unknown]
  - Syringe issue [Unknown]
  - Limb operation [Unknown]
  - Hospitalisation [Unknown]
  - Drug prescribing error [Unknown]
  - Squamous cell carcinoma of lung [Unknown]
  - Ear pain [Unknown]
  - Drug dose omission [Unknown]
  - Injection site bruising [Unknown]

NARRATIVE: CASE EVENT DATE: 201408
